FAERS Safety Report 7125071-3 (Version None)
Quarter: 2010Q4

REPORT INFORMATION
  Report Type: 
  Country: None (occurrence: None)
  Receive Date: 20101129
  Receipt Date: 20101015
  Transmission Date: 20110411
  Serious: Yes (Hospitalization)
  Sender: FDA-Public Use
  Company Number: US-AMGEN-USASP2010000451

PATIENT

DRUGS (1)
  1. ENBREL [Suspect]
     Indication: ANKYLOSING SPONDYLITIS
     Dates: start: 20090715, end: 20100920

REACTIONS (4)
  - BACK PAIN [None]
  - MUSCULOSKELETAL STIFFNESS [None]
  - OVERWEIGHT [None]
  - THERAPEUTIC RESPONSE DECREASED [None]
